FAERS Safety Report 10184600 (Version 1)
Quarter: 2014Q2

REPORT INFORMATION
  Report Type: Spontaneous
  Country: US (occurrence: US)
  Receive Date: 20140521
  Receipt Date: 20140521
  Transmission Date: 20141212
  Serious: No
  Sender: FDA-Public Use
  Company Number: US-009507513-1405USA005209

PATIENT
  Age: 7 Year
  Sex: Male

DRUGS (3)
  1. TEMODAR [Suspect]
     Indication: OLIGOASTROCYTOMA
     Dosage: UNK, 160 MG/M2 5 DAYS A WEK FOR 3 CONSECUTIVE WEEKS AND ONE ADDITIONAL DAY IN THE FOURTH WEEK
  2. TEMODAR [Suspect]
     Dosage: UNK, 200 MG/M2 DAILY FOR 5 DAYS EVERY 5WEEK
  3. VALPROIC ACID [Concomitant]
     Dosage: UNK

REACTIONS (3)
  - Overdose [Unknown]
  - Thrombocytopenia [Recovered/Resolved]
  - Platelet count abnormal [Recovered/Resolved]
